FAERS Safety Report 19411033 (Version 1)
Quarter: 2021Q2

REPORT INFORMATION
  Report Type: Spontaneous
  Country: FR (occurrence: FR)
  Receive Date: 20210614
  Receipt Date: 20210614
  Transmission Date: 20210717
  Serious: Yes (Hospitalization)
  Sender: FDA-Public Use
  Company Number: NVSC2021FR128735

PATIENT
  Age: 51 Year
  Sex: Male
  Weight: 67 kg

DRUGS (10)
  1. CIPROFLOXACIN. [Suspect]
     Active Substance: CIPROFLOXACIN
     Indication: ANTIBIOTIC PROPHYLAXIS
     Dosage: 400 MG, QD
     Route: 042
     Dates: start: 20210402, end: 20210406
  2. LANSOPRAZOLE. [Suspect]
     Active Substance: LANSOPRAZOLE
     Indication: PROPHYLAXIS AGAINST GASTROINTESTINAL ULCER
     Dosage: 30 MG, QD
     Route: 048
     Dates: start: 20210403
  3. MEROPENEM ANHYDROUS [Suspect]
     Active Substance: MEROPENEM ANHYDROUS
     Indication: ANTIBIOTIC PROPHYLAXIS
     Dosage: 1 G, QD
     Route: 042
     Dates: start: 20210401, end: 20210402
  4. HEPARIN [Suspect]
     Active Substance: HEPARIN SODIUM
     Indication: THROMBOSIS PROPHYLAXIS
     Dosage: 6000 IU, QD
     Route: 058
     Dates: start: 20210316, end: 20210414
  5. IOMERON [Suspect]
     Active Substance: IOMEPROL
     Indication: COMPUTERISED TOMOGRAM
     Dosage: UNK (DOSE UNIQUE)
     Route: 042
     Dates: start: 20210420, end: 20210420
  6. PROPOFOL. [Suspect]
     Active Substance: PROPOFOL
     Indication: SEDATION
     Dosage: 0.20 ML/HEURE
     Route: 042
     Dates: start: 20210401, end: 20210521
  7. SUFENTANIL [Suspect]
     Active Substance: SUFENTANIL
     Indication: SEDATION
     Dosage: 0.5 ML/HEURE
     Route: 042
     Dates: start: 20210401
  8. ERTAPENEM. [Suspect]
     Active Substance: ERTAPENEM SODIUM
     Indication: ANTIBIOTIC PROPHYLAXIS
     Dosage: UNK
     Route: 042
     Dates: start: 20210331, end: 20210331
  9. AMOXICILLIN. [Suspect]
     Active Substance: AMOXICILLIN
     Indication: ANTIBIOTIC PROPHYLAXIS
     Dosage: 3 G, QD
     Route: 065
     Dates: start: 20210415, end: 20210422
  10. INSULIN [Suspect]
     Active Substance: INSULIN NOS
     Indication: INSULIN THERAPY
     Dosage: 100 UI/ML (EN FONCTION DE LA GLYCEMIE)
     Route: 058
     Dates: start: 20210406, end: 20210409

REACTIONS (2)
  - Drug reaction with eosinophilia and systemic symptoms [Recovering/Resolving]
  - Rash morbilliform [Recovering/Resolving]

NARRATIVE: CASE EVENT DATE: 20210406
